FAERS Safety Report 8903724 (Version 2)
Quarter: 2013Q2

REPORT INFORMATION
  Report Type: Spontaneous
  Country: IT (occurrence: IT)
  Receive Date: 20121113
  Receipt Date: 20130521
  Transmission Date: 20140414
  Serious: Yes (Disabling)
  Sender: FDA-Public Use
  Company Number: IT-BAYER-2012-117201

PATIENT
  Age: 32 Year
  Sex: Female

DRUGS (1)
  1. CIPROXIN 500 MG FILM-COATED TABLETS [Suspect]
     Indication: CYSTITIS
     Dosage: 500 MG, BID
     Route: 048
     Dates: start: 20121019, end: 20121020

REACTIONS (4)
  - Tendon pain [Not Recovered/Not Resolved]
  - Sensation of heaviness [Recovered/Resolved]
  - Tremor [Recovered/Resolved]
  - Anxiety [Recovered/Resolved]
